FAERS Safety Report 5754650-0 (Version None)
Quarter: 2008Q2

REPORT INFORMATION
  Report Type: 
  Country: None (occurrence: None)
  Receive Date: 20080527
  Receipt Date: 20080513
  Transmission Date: 20081010
  Serious: Yes (Hospitalization, Other)
  Sender: FDA-Public Use
  Company Number: SPV1-2008-01084

PATIENT
  Age: 44 Year
  Sex: Female
  Weight: 81.6 kg

DRUGS (12)
  1. VYVANSE [Suspect]
     Indication: ATTENTION DEFICIT/HYPERACTIVITY DISORDER
     Dosage: 70 MG, 1X/DAY:QD, ORAL
     Route: 048
     Dates: start: 20080301
  2. MULTIVITAMINS (ASCORBIC ACID, ERGOCALCIFEROL, FOLIC ACID, NICOTINAMIDE [Concomitant]
  3. VITAMIN B-12 (CYANACOBALAMIN) [Concomitant]
  4. VITAMIN B6 [Concomitant]
  5. TOFRANIL/00053902/ (IMIPRAMINE HYDROCHLORIDE) [Concomitant]
  6. LANTUS [Concomitant]
  7. INSULIN (INSULIN) [Concomitant]
  8. WELLBUTRIN [Concomitant]
  9. LORAZEPAM [Concomitant]
  10. LAMICTAL [Concomitant]
  11. PINDOLOL [Concomitant]
  12. CYMBALTA [Concomitant]

REACTIONS (3)
  - DEPRESSION [None]
  - SUICIDAL IDEATION [None]
  - SUICIDE ATTEMPT [None]
